FAERS Safety Report 16540717 (Version 2)
Quarter: 2019Q3

REPORT INFORMATION
  Report Type: Spontaneous
  Country: ES (occurrence: ES)
  Receive Date: 20190708
  Receipt Date: 20190715
  Transmission Date: 20191004
  Serious: Yes (Other)
  Sender: FDA-Public Use
  Company Number: ES-PFIZER INC-2019279753

PATIENT
  Sex: Female

DRUGS (12)
  1. MAGNESIUM SULFATE. [Suspect]
     Active Substance: MAGNESIUM SULFATE
     Dosage: BOLUS DOSE OF 2 G, FOLLOWED BY INFUSION OF 1.5 G/H
     Route: 064
     Dates: start: 2009, end: 2009
  2. BETAMETHASONE. [Concomitant]
     Active Substance: BETAMETHASONE
     Dosage: UNK
     Route: 064
     Dates: start: 2009, end: 2009
  3. PREDNISONE. [Concomitant]
     Active Substance: PREDNISONE
     Dosage: 5 MG, DAILY
     Route: 064
  4. CALCIUM [Concomitant]
     Active Substance: CALCIUM
     Dosage: UNK
     Route: 064
  5. LABETALOL [Suspect]
     Active Substance: LABETALOL\LABETALOL HYDROCHLORIDE
     Dosage: 50-100 MG, 3X/DAY (EVERY 8 HOURS)
     Route: 064
     Dates: start: 2009, end: 2009
  6. AZATHIOPRINE. [Suspect]
     Active Substance: AZATHIOPRINE
     Dosage: 100 MG, DAILY
     Route: 064
     Dates: start: 2009, end: 2009
  7. IRON [Concomitant]
     Active Substance: IRON
     Dosage: UNK
     Route: 064
  8. PREDNISONE. [Concomitant]
     Active Substance: PREDNISONE
     Dosage: 5-10 MG, DAILY
     Route: 064
  9. HYDROXYCHLOROQUINE [Suspect]
     Active Substance: HYDROXYCHLOROQUINE
     Dosage: 200 MG, DAILY
     Route: 064
     Dates: start: 2009, end: 2009
  10. VITAMIN D [ERGOCALCIFEROL] [Concomitant]
     Active Substance: ERGOCALCIFEROL
     Dosage: UNK
     Route: 064
  11. FOLIC ACID. [Concomitant]
     Active Substance: FOLIC ACID
     Dosage: UNK
     Route: 064
  12. METHYLPREDNISOLONE SODIUM SUCCINATE. [Suspect]
     Active Substance: METHYLPREDNISOLONE SODIUM SUCCINATE
     Dosage: 60 MG, DAILY
     Route: 064
     Dates: start: 2009, end: 2009

REACTIONS (3)
  - Premature baby [Unknown]
  - Foetal distress syndrome [Unknown]
  - Foetal growth restriction [Unknown]

NARRATIVE: CASE EVENT DATE: 2009
